FAERS Safety Report 9842221 (Version 3)
Quarter: 2017Q4

REPORT INFORMATION
  Report Type: Spontaneous
  Country: US (occurrence: US)
  Receive Date: 20140124
  Receipt Date: 20171213
  Transmission Date: 20180321
  Serious: Yes (Hospitalization, Disabling, Other)
  Sender: FDA-Public Use
  Company Number: US-009507513-1205USA02812

PATIENT
  Sex: Female
  Weight: 93.88 kg

DRUGS (3)
  1. CALCIUM D3 [Concomitant]
     Active Substance: CALCIUM\CHOLECALCIFEROL
     Dosage: 1 PILL A DAY
     Dates: start: 1990
  2. FOSAMAX [Suspect]
     Active Substance: ALENDRONATE SODIUM
     Indication: OSTEOPOROSIS
     Dosage: 70 MG, QW
     Route: 048
     Dates: start: 2005, end: 2010
  3. ALENDRONATE SODIUM. [Suspect]
     Active Substance: ALENDRONATE SODIUM
     Dosage: 70 MG, UNK
     Route: 048

REACTIONS (54)
  - Low turnover osteopathy [Unknown]
  - Anaemia postoperative [Recovered/Resolved]
  - Anticoagulation drug level below therapeutic [Unknown]
  - Gastrectomy [Unknown]
  - Biopsy skin [Unknown]
  - Large intestine perforation [Unknown]
  - Coronary artery disease [Unknown]
  - Intramedullary rod insertion [Unknown]
  - Vascular calcification [Unknown]
  - Joint dislocation [Recovered/Resolved]
  - Ankle operation [Unknown]
  - Mastectomy [Unknown]
  - Cardioversion [Unknown]
  - Hypothyroidism [Unknown]
  - Anaemia [Unknown]
  - Cardiac murmur [Unknown]
  - Constipation [Not Recovered/Not Resolved]
  - Ileostomy closure [Unknown]
  - Bladder prolapse [Unknown]
  - Anaemia of chronic disease [Unknown]
  - Colon cancer [Unknown]
  - Foot fracture [Unknown]
  - Limb operation [Unknown]
  - Osteoarthritis [Unknown]
  - Deep vein thrombosis [Unknown]
  - Nasopharyngitis [Recovered/Resolved]
  - Femur fracture [Unknown]
  - Vitamin D deficiency [Unknown]
  - Ankle fracture [Unknown]
  - Gait disturbance [Unknown]
  - Osteoarthritis [Unknown]
  - Coronary artery disease [Unknown]
  - Femur fracture [Unknown]
  - Osteoarthritis [Unknown]
  - Arrhythmia [Unknown]
  - Hyperlipidaemia [Unknown]
  - Cardiac failure congestive [Unknown]
  - Arthralgia [Unknown]
  - Atrial fibrillation [Unknown]
  - Osteoporosis [Unknown]
  - Angiopathy [Unknown]
  - Arthritis [Unknown]
  - Diabetes mellitus inadequate control [Unknown]
  - Humerus fracture [Unknown]
  - Cataract operation [Unknown]
  - Aortic stenosis [Unknown]
  - Multiple fractures [Unknown]
  - Cholecystectomy [Unknown]
  - Systemic lupus erythematosus [Unknown]
  - Joint dislocation [Unknown]
  - Pain in extremity [Unknown]
  - Aortic valve replacement [Unknown]
  - Chronic kidney disease [Unknown]
  - Diabetic neuropathy [Unknown]

NARRATIVE: CASE EVENT DATE: 200602
